FAERS Safety Report 19455894 (Version 1)
Quarter: 2021Q2

REPORT INFORMATION
  Report Type: Spontaneous
  Country: US (occurrence: US)
  Receive Date: 20210624
  Receipt Date: 20210624
  Transmission Date: 20210717
  Serious: No
  Sender: FDA-Public Use
  Company Number: US-ASTRAZENECA-2021A511122

PATIENT
  Sex: Female
  Weight: 103.9 kg

DRUGS (1)
  1. BYDUREON BCISE [Suspect]
     Active Substance: EXENATIDE
     Indication: DIABETES MELLITUS
     Route: 058
     Dates: start: 202105

REACTIONS (3)
  - Injection site haemorrhage [Unknown]
  - Injection site extravasation [Unknown]
  - Incorrect dose administered by device [Unknown]
